FAERS Safety Report 17076315 (Version 2)
Quarter: 2019Q4

REPORT INFORMATION
  Report Type: Spontaneous
  Country: FR (occurrence: FR)
  Receive Date: 20191126
  Receipt Date: 20191227
  Transmission Date: 20200122
  Serious: Yes (Other)
  Sender: FDA-Public Use
  Company Number: FR-MYLANLABS-2019M1114034

PATIENT
  Age: 30 Year
  Sex: Male

DRUGS (3)
  1. CANNABIS [Suspect]
     Active Substance: CANNABIS SATIVA SUBSP. INDICA TOP
     Indication: PRODUCT USED FOR UNKNOWN INDICATION
     Dosage: 10 JOINTS PAR JOUR
     Route: 055
  2. ALCOOL [Suspect]
     Active Substance: ALCOHOL
     Indication: PRODUCT USED FOR UNKNOWN INDICATION
     Dosage: 27 U 3 ? 5 FOIS /SEMAINE
     Route: 048
  3. ALPRAZOLAM MYLAN [Suspect]
     Active Substance: ALPRAZOLAM
     Indication: PRODUCT USED FOR UNKNOWN INDICATION
     Dosage: 30 CP DE 0,5MG SUR 2 JOURS
     Route: 065

REACTIONS (5)
  - Drug abuse [Unknown]
  - Alcohol abuse [Not Recovered/Not Resolved]
  - Drug withdrawal convulsions [Recovered/Resolved]
  - Drug dependence [Not Recovered/Not Resolved]
  - Epilepsy [Recovering/Resolving]

NARRATIVE: CASE EVENT DATE: 2017
